FAERS Safety Report 18278231 (Version 1)
Quarter: 2020Q3

REPORT INFORMATION
  Report Type: Spontaneous
  Country: US (occurrence: US)
  Receive Date: 20200901
  Receipt Date: 20200901
  Transmission Date: 20201103
  Serious: No
  Sender: FDA-Public Use
  Company Number: None

PATIENT
  Sex: Male

DRUGS (1)
  1. PRO RESTORE CBD+ [Suspect]
     Active Substance: CANNABIDIOL\HERBALS
     Indication: ANALGESIC THERAPY
     Dates: start: 20200707, end: 20200813

REACTIONS (1)
  - Transient ischaemic attack [None]

NARRATIVE: CASE EVENT DATE: 20200814
